FAERS Safety Report 8290044-4 (Version None)
Quarter: 2012Q2

REPORT INFORMATION
  Report Type: 
  Country: None (occurrence: None)
  Receive Date: 20120412
  Receipt Date: 20120412
  Transmission Date: 20120825
  Serious: Yes (Hospitalization)
  Sender: FDA-Public Use
  Company Number: None

PATIENT
  Sex: Male
  Weight: 86.6 kg

DRUGS (3)
  1. PENTOSTATIN [Suspect]
     Dosage: 7.76 MG
  2. CYCLOPHOSPHAMIDE [Suspect]
     Dosage: 1164 MG
  3. RITUXIMAB (MOAB C2B8 ANTI CD20, CHIMERIC) [Suspect]
     Dosage: 730 MG

REACTIONS (4)
  - LYMPHOCYTE COUNT DECREASED [None]
  - NEUTROPHIL COUNT DECREASED [None]
  - HAEMATEMESIS [None]
  - UPPER RESPIRATORY TRACT INFECTION [None]
